FAERS Safety Report 6538040-9 (Version None)
Quarter: 2010Q1

REPORT INFORMATION
  Report Type: 
  Country: None (occurrence: None)
  Receive Date: 20100114
  Receipt Date: 20100106
  Transmission Date: 20100710
  Serious: Yes (Hospitalization)
  Sender: FDA-Public Use
  Company Number: FR-ASTRAZENECA-2010SE00486

PATIENT
  Sex: Female

DRUGS (7)
  1. NEXIUM [Suspect]
     Route: 048
     Dates: start: 20080704, end: 20080715
  2. DOTAREM [Suspect]
     Route: 042
     Dates: start: 20080630, end: 20080630
  3. METHYLPREDNISOLONE 4MG TAB [Suspect]
     Route: 042
     Dates: start: 20080704, end: 20080707
  4. SOLUPRED [Suspect]
     Route: 048
     Dates: start: 20080707, end: 20080715
  5. NORLEVO [Suspect]
     Indication: CONTRACEPTION
     Route: 048
     Dates: start: 20080619, end: 20080619
  6. ATENOLOL [Concomitant]
     Indication: HYPERTENSION
     Route: 048
  7. ATENOLOL [Concomitant]
     Route: 048

REACTIONS (3)
  - DRUG EXPOSURE DURING PREGNANCY [None]
  - PRE-ECLAMPSIA [None]
  - PREMATURE BABY [None]
